FAERS Safety Report 18267369 (Version 1)
Quarter: 2020Q3

REPORT INFORMATION
  Report Type: Spontaneous
  Country: US (occurrence: US)
  Receive Date: 20200915
  Receipt Date: 20200915
  Transmission Date: 20201103
  Serious: No
  Sender: FDA-Public Use
  Company Number: None

PATIENT
  Age: 85 Year
  Sex: Male
  Weight: 99 kg

DRUGS (3)
  1. HYDROCHLOROTHIAZIDE. [Concomitant]
     Active Substance: HYDROCHLOROTHIAZIDE
  2. JAKAFI [Suspect]
     Active Substance: RUXOLITINIB
     Indication: REFRACTORY CYTOPENIA WITH MULTILINEAGE DYSPLASIA
     Route: 048
  3. PRESERVISION AREDS [Concomitant]
     Active Substance: MINERALS\VITAMINS

REACTIONS (1)
  - Weight decreased [None]

NARRATIVE: CASE EVENT DATE: 20200915
